FAERS Safety Report 4909823-3 (Version None)
Quarter: 2006Q1

REPORT INFORMATION
  Report Type: 
  Country: None (occurrence: None)
  Receive Date: 20060213
  Receipt Date: 20060202
  Transmission Date: 20060701
  Serious: Yes (Hospitalization, Other)
  Sender: FDA-Public Use
  Company Number: PHFR2006GB00746

PATIENT
  Sex: Male

DRUGS (3)
  1. DIOVAN [Suspect]
     Indication: HYPERTENSION
     Dosage: 80MG/DAY
     Route: 065
  2. DIOVAN [Suspect]
     Dosage: 40MG/DAY
     Route: 065
  3. BISOPROLOL [Concomitant]
     Indication: HYPERTENSION
     Route: 065

REACTIONS (7)
  - ARTHRALGIA [None]
  - BRADYCARDIA [None]
  - HEADACHE [None]
  - HEART RATE IRREGULAR [None]
  - LETHARGY [None]
  - MALAISE [None]
  - MUSCULOSKELETAL DISCOMFORT [None]
